FAERS Safety Report 4394330-X (Version None)
Quarter: 2004Q3

REPORT INFORMATION
  Report Type: 
  Country: None (occurrence: None)
  Receive Date: 20040707
  Receipt Date: 20040623
  Transmission Date: 20050211
  Serious: Yes (Other)
  Sender: FDA-Public Use
  Company Number: 207438

PATIENT
  Age: 53 Year
  Sex: Male

DRUGS (1)
  1. RAPTIVA [Suspect]
     Indication: PSORIASIS
     Dosage: SUBCUTANEOUS
     Route: 058
     Dates: end: 20040516

REACTIONS (8)
  - ANOREXIA [None]
  - CHILLS [None]
  - FATIGUE [None]
  - HEADACHE [None]
  - INSOMNIA [None]
  - LYMPHADENOPATHY [None]
  - LYMPHOMA [None]
  - PYREXIA [None]
